APPROVED DRUG PRODUCT: LAZANDA
Active Ingredient: FENTANYL CITRATE
Strength: EQ 0.1MG BASE **Federal Register determination that product was not discontinued or withdrawn for safety or effectiveness reasons**
Dosage Form/Route: SPRAY, METERED;NASAL
Application: N022569 | Product #001
Applicant: BTCP PHARMA LLC
Approved: Jun 30, 2011 | RLD: Yes | RS: No | Type: DISCN

PATENTS:
Patent 9731869 | Expires: Jan 26, 2032